FAERS Safety Report 9860618 (Version 2)
Quarter: 2014Q1

REPORT INFORMATION
  Report Type: Spontaneous
  Country: FR (occurrence: FR)
  Receive Date: 20140202
  Receipt Date: 20140202
  Transmission Date: 20141002
  Serious: No
  Sender: FDA-Public Use
  Company Number: FR-ALLERGAN-1217912US

PATIENT
  Age: 54 Year
  Sex: Female
  Weight: 62 kg

DRUGS (2)
  1. VISTABEL [Suspect]
     Indication: SKIN WRINKLING
     Dosage: 50 UNITS, SINGLE
     Dates: start: 20121010, end: 20121010
  2. VISTABEL [Suspect]
     Dosage: UNK, SINGLE
     Dates: start: 20090407, end: 20090407

REACTIONS (4)
  - Eye irritation [Recovered/Resolved]
  - Eye disorder [Recovered/Resolved]
  - Pain [Recovered/Resolved]
  - Ear discomfort [Recovered/Resolved]
